FAERS Safety Report 16972007 (Version 1)
Quarter: 2019Q4

REPORT INFORMATION
  Report Type: Spontaneous
  Country: IT (occurrence: IT)
  Receive Date: 20191029
  Receipt Date: 20191029
  Transmission Date: 20200122
  Serious: Yes (Hospitalization)
  Sender: FDA-Public Use
  Company Number: IT-ELI_LILLY_AND_COMPANY-IT201910010592

PATIENT
  Age: 72 Year
  Sex: Male

DRUGS (7)
  1. TRIATEC [RAMIPRIL] [Concomitant]
     Active Substance: RAMIPRIL
  2. CARDICOR [Concomitant]
     Active Substance: BISOPROLOL
  3. CARDIOASPIRIN [Concomitant]
     Active Substance: ASPIRIN
  4. ALIMTA [Suspect]
     Active Substance: PEMETREXED DISODIUM
     Indication: LUNG NEOPLASM
     Dosage: 900 MG, CYCLICAL
     Route: 042
     Dates: start: 20150612, end: 20151012
  5. CARBOPLATINO SUN [Suspect]
     Active Substance: CARBOPLATIN
     Indication: LUNG NEOPLASM
     Dosage: 436 MG, CYCLICAL
     Route: 042
     Dates: start: 20150612, end: 20150901
  6. MEPRAL [OMEPRAZOLE] [Concomitant]
  7. LACIREX [Concomitant]
     Active Substance: LACIDIPINE

REACTIONS (6)
  - Neutropenia [Unknown]
  - Thrombocytopenia [Unknown]
  - Mucosal inflammation [Unknown]
  - Hypercreatinaemia [Unknown]
  - Anaemia [Unknown]
  - Off label use [Recovered/Resolved]

NARRATIVE: CASE EVENT DATE: 20150612
